FAERS Safety Report 5130347-5 (Version None)
Quarter: 2006Q4

REPORT INFORMATION
  Report Type: 
  Country: None (occurrence: None)
  Receive Date: 20061019
  Receipt Date: 20050531
  Transmission Date: 20070319
  Serious: Yes (Hospitalization)
  Sender: FDA-Public Use
  Company Number: PL-BRISTOL-MYERS SQUIBB COMPANY-12989794

PATIENT
  Age: 66 Year
  Sex: Male
  Weight: 71 kg

DRUGS (4)
  1. IRBESARTAN [Suspect]
     Indication: HYPERTENSION
     Dates: start: 20040826
  2. BLINDED: PLACEBO [Suspect]
     Indication: HYPERTENSION
     Dates: start: 20040826
  3. ACENOCOUMAROL [Suspect]
     Indication: PROPHYLAXIS
     Dosage: STOPPED ON 15-MAY-2005 AND RESTARTED ON 20-MAY-2005
     Dates: start: 20040827
  4. VITAMIN K [Concomitant]

REACTIONS (1)
  - EPISTAXIS [None]
